FAERS Safety Report 15935076 (Version 2)
Quarter: 2019Q1

REPORT INFORMATION
  Report Type: Spontaneous
  Country: ES (occurrence: ES)
  Receive Date: 20190207
  Receipt Date: 20190211
  Transmission Date: 20190417
  Serious: Yes (Hospitalization)
  Sender: FDA-Public Use
  Company Number: ES-ROCHE-2261941

PATIENT
  Age: 56 Year
  Sex: Female

DRUGS (4)
  1. TOCILIZUMAB. [Suspect]
     Active Substance: TOCILIZUMAB
     Indication: POLYARTHRITIS
     Route: 042
     Dates: start: 20150201, end: 20180802
  2. ALENDRONATO SODICO [Concomitant]
     Indication: POLYARTHRITIS
     Route: 065
  3. HIDROFEROL [Concomitant]
     Active Substance: CALCIFEDIOL
     Route: 065
  4. SALAZOPIRINA [Concomitant]
     Active Substance: SULFASALAZINE
     Indication: POLYARTHRITIS
     Route: 048
     Dates: start: 20150201

REACTIONS (1)
  - Lung adenocarcinoma [Recovering/Resolving]

NARRATIVE: CASE EVENT DATE: 20181207
